FAERS Safety Report 4935089-4 (Version None)
Quarter: 2006Q1

REPORT INFORMATION
  Report Type: 
  Country: None (occurrence: None)
  Receive Date: 20060303
  Receipt Date: 20060303
  Transmission Date: 20060701
  Serious: Yes (Other)
  Sender: FDA-Public Use
  Company Number: None

PATIENT
  Age: 55 Year
  Sex: Female
  Weight: 97.3 kg

DRUGS (1)
  1. BENZOCAINE (HURRICAINE) SPRAY [Suspect]
     Indication: ENDOSCOPY
     Route: 065
     Dates: start: 20051020

REACTIONS (1)
  - METHAEMOGLOBINAEMIA [None]
